FAERS Safety Report 7304636-X (Version None)
Quarter: 2011Q1

REPORT INFORMATION
  Report Type: 
  Country: None (occurrence: None)
  Receive Date: 20110222
  Receipt Date: 20110204
  Transmission Date: 20110831
  Serious: No
  Sender: FDA-Public Use
  Company Number: US-BIOGENIDEC-2011BI004164

PATIENT
  Sex: Male

DRUGS (1)
  1. TYSABRI [Suspect]
     Indication: MULTIPLE SCLEROSIS
     Route: 042
     Dates: start: 20090616

REACTIONS (10)
  - FALL [None]
  - BACK PAIN [None]
  - SPINAL X-RAY ABNORMAL [None]
  - HERPES ZOSTER [None]
  - BALANCE DISORDER [None]
  - MUSCULAR WEAKNESS [None]
  - ARTHRITIS [None]
  - ASTHENIA [None]
  - MOVEMENT DISORDER [None]
  - HYPOAESTHESIA [None]
